FAERS Safety Report 6167445-3 (Version None)
Quarter: 2009Q2

REPORT INFORMATION
  Report Type: 
  Country: None (occurrence: None)
  Receive Date: 20090424
  Receipt Date: 20090420
  Transmission Date: 20091009
  Serious: Yes (Life-Threatening, Hospitalization)
  Sender: FDA-Public Use
  Company Number: PHEH2009US04079

PATIENT

DRUGS (6)
  1. RECLAST [Suspect]
     Indication: OSTEOPOROSIS
     Dosage: 5 MG, ONCE/SINGLE
     Dates: start: 20090326, end: 20090326
  2. LEXAPRO [Concomitant]
     Dosage: 10 MG, QD
  3. LOVAZA [Concomitant]
     Dosage: UNK
  4. ZESTRIL [Concomitant]
     Dosage: 40 MG, QD
  5. LESCOL XL [Concomitant]
     Dosage: 80 MG, QD
  6. ZETIA [Concomitant]
     Dosage: UNK, UNK

REACTIONS (7)
  - BLOOD CREATININE INCREASED [None]
  - BLOOD UREA INCREASED [None]
  - CORONARY ARTERY BYPASS [None]
  - DIALYSIS [None]
  - MYOCARDITIS SEPTIC [None]
  - NAUSEA [None]
  - VOMITING [None]
